FAERS Safety Report 6804132-X (Version None)
Quarter: 2010Q2

REPORT INFORMATION
  Report Type: 
  Country: None (occurrence: None)
  Receive Date: 20100628
  Receipt Date: 20070707
  Transmission Date: 20101027
  Serious: No
  Sender: FDA-Public Use
  Company Number: US-PFIZER INC-2007000979

PATIENT
  Sex: Female

DRUGS (7)
  1. XALATAN [Suspect]
     Indication: OPTIC NERVE DISORDER
     Route: 047
     Dates: start: 20031010, end: 20061219
  2. AMBIEN [Concomitant]
  3. ASCORBIC ACID/BIOFLAVONOIDS [Concomitant]
  4. CHONDROITIN/GLUCOSAMINE [Concomitant]
  5. VITAMINS WITH MINERALS [Concomitant]
  6. DRUG, UNSPECIFIED [Concomitant]
     Route: 047
  7. FLUTICASONE PROPIONATE [Concomitant]
     Route: 045

REACTIONS (9)
  - ABNORMAL SENSATION IN EYE [None]
  - DRUG HYPERSENSITIVITY [None]
  - ERYTHEMA OF EYELID [None]
  - EYE DISORDER [None]
  - EYE IRRITATION [None]
  - GROWTH OF EYELASHES [None]
  - HAIR GROWTH ABNORMAL [None]
  - INSTILLATION SITE FOREIGN BODY SENSATION [None]
  - OCULAR HYPERAEMIA [None]
